FAERS Safety Report 11717903 (Version 1)
Quarter: 2015Q4

REPORT INFORMATION
  Report Type: Spontaneous
  Country: US (occurrence: None)
  Receive Date: 20151109
  Receipt Date: 20151109
  Transmission Date: 20160304
  Serious: No
  Sender: FDA-Public Use
  Company Number: None

PATIENT
  Age: 41 Year
  Sex: Female
  Weight: 104.33 kg

DRUGS (5)
  1. ALKA-SELTZER HEARTBURN + GAS RELIEF CHEWS [Concomitant]
  2. PROAIR HFA [Suspect]
     Active Substance: ALBUTEROL SULFATE
     Indication: BRONCHITIS
     Dosage: 2 PUFFS EVERY 4-6H
     Dates: start: 20151104, end: 20151105
  3. PREDNISONE. [Concomitant]
     Active Substance: PREDNISONE
  4. ACETAMINOPHEN. [Concomitant]
     Active Substance: ACETAMINOPHEN
  5. PROAIR RESPICLICK [Concomitant]
     Active Substance: ALBUTEROL SULFATE

REACTIONS (16)
  - Dizziness [None]
  - Abdominal pain upper [None]
  - Flatulence [None]
  - Drug ineffective [None]
  - Dry throat [None]
  - Throat irritation [None]
  - Thirst [None]
  - Fatigue [None]
  - Oropharyngeal pain [None]
  - Dyspepsia [None]
  - Nausea [None]
  - Irritable bowel syndrome [None]
  - Retching [None]
  - Gastrooesophageal reflux disease [None]
  - Cough [None]
  - Dyspnoea [None]

NARRATIVE: CASE EVENT DATE: 20151105
